FAERS Safety Report 15985169 (Version 2)
Quarter: 2019Q1

REPORT INFORMATION
  Report Type: Spontaneous
  Country: US (occurrence: US)
  Receive Date: 20190220
  Receipt Date: 20190328
  Transmission Date: 20190418
  Serious: No
  Sender: FDA-Public Use
  Company Number: US-ELI_LILLY_AND_COMPANY-US201901015357

PATIENT
  Sex: Female
  Weight: 82 kg

DRUGS (12)
  1. TORADOL [Concomitant]
     Active Substance: KETOROLAC TROMETHAMINE
     Indication: MIGRAINE
     Dosage: UNK UNK, PRN
     Route: 065
     Dates: start: 20190130
  2. LEVOTHYROXINE. [Concomitant]
     Active Substance: LEVOTHYROXINE
     Dosage: 137 UG, 6/W
     Route: 048
     Dates: start: 20181024
  3. CLARITIN [CLARITHROMYCIN] [Concomitant]
     Active Substance: CLARITHROMYCIN
     Indication: HYPERSENSITIVITY
     Dosage: 10 MG, PRN
     Route: 048
     Dates: start: 20190105
  4. LEVOTHYROXINE. [Concomitant]
     Active Substance: LEVOTHYROXINE
     Dosage: 90 UG, DAILY
     Route: 048
     Dates: start: 20190102
  5. ATIVAN [Concomitant]
     Active Substance: LORAZEPAM
     Dosage: 0.5 MG, UNKNOWN
     Route: 065
     Dates: start: 20181129
  6. SUMATRIPTAN. [Concomitant]
     Active Substance: SUMATRIPTAN
     Indication: MIGRAINE
     Dosage: UNK, PRN
     Route: 065
     Dates: start: 20190204
  7. LEVOTHYROXINE. [Concomitant]
     Active Substance: LEVOTHYROXINE
     Dosage: 1.5 DOSAGE FORM, WEEKLY (1/W)
     Route: 048
     Dates: start: 20181024
  8. MAG-OX [Concomitant]
     Active Substance: MAGNESIUM OXIDE
     Dosage: UNK, DAILY
     Route: 048
     Dates: start: 20181124
  9. XANAX [Concomitant]
     Active Substance: ALPRAZOLAM
     Dosage: 0.25 MG, DAILY, AS NEEDED
     Route: 048
     Dates: start: 20180312
  10. CHOLECALCIFEROL [Concomitant]
     Active Substance: CHOLECALCIFEROL
     Dosage: 1 DOSAGE FORM, DAILY
     Route: 048
     Dates: start: 20160830
  11. EMGALITY [Suspect]
     Active Substance: GALCANEZUMAB-GNLM
     Indication: MIGRAINE
     Dosage: 240 MG, SINGLE
     Route: 058
     Dates: start: 20190102
  12. EMGALITY [Suspect]
     Active Substance: GALCANEZUMAB-GNLM
     Dosage: 140 MG, MONTHLY (1/M)
     Route: 058
     Dates: start: 20190202

REACTIONS (4)
  - Nausea [Recovered/Resolved]
  - Hypoaesthesia [Unknown]
  - Vertigo [Recovered/Resolved]
  - Fatigue [Unknown]

NARRATIVE: CASE EVENT DATE: 20190105
